FAERS Safety Report 4505825-X (Version None)
Quarter: 2004Q4

REPORT INFORMATION
  Report Type: 
  Country: None (occurrence: None)
  Receive Date: 20041025
  Receipt Date: 20040504
  Transmission Date: 20050328
  Serious: Yes (Other)
  Sender: FDA-Public Use
  Company Number: US-JNJFOC-20040306222

PATIENT
  Age: 59 Year
  Sex: Male
  Weight: 135.1719 kg

DRUGS (18)
  1. REMICADE [Suspect]
     Indication: RHEUMATOID ARTHRITIS
     Dosage: 700 MG, 1 IN 6 WEKK, INTRAVENOUS
     Route: 042
     Dates: start: 20040217, end: 20040217
  2. REMICADE [Suspect]
     Indication: RHEUMATOID ARTHRITIS
     Dosage: 700 MG, 1 IN 6 WEKK, INTRAVENOUS
     Route: 042
     Dates: start: 20010801
  3. MIRAPEX  (PRAMIPEXOLE DIHYDROCLORIDE) [Concomitant]
  4. TENORMIN [Concomitant]
  5. MEVACOR [Concomitant]
  6. MEXILETINE HCL [Concomitant]
  7. PRILOSEC [Concomitant]
  8. CARDIZEM CD [Concomitant]
  9. METHADONE (METHADONE) [Concomitant]
  10. METHOTREXATE SODIUM [Concomitant]
  11. PREDNISONE [Concomitant]
  12. ACETYLSALICYLIC ACID SRT [Concomitant]
  13. LEVSIN (HYOSCYAMINE SULFATE) [Concomitant]
  14. LASIX [Concomitant]
  15. POTASSIUM (POTASSIUM) [Concomitant]
  16. CTLA4IG (ALL OTHER THERAPEUTIC PRODUCTS) [Concomitant]
  17. CELEBREX [Concomitant]
  18. FAMVIR [Concomitant]

REACTIONS (1)
  - NEUROPATHY PERIPHERAL [None]
